FAERS Safety Report 15668024 (Version 2)
Quarter: 2018Q4

REPORT INFORMATION
  Report Type: Spontaneous
  Country: US (occurrence: US)
  Receive Date: 20181128
  Receipt Date: 20181129
  Transmission Date: 20190205
  Serious: Yes (Life-Threatening, Hospitalization, Other)
  Sender: FDA-Public Use
  Company Number: US-BAXTER-2018BAX028746

PATIENT
  Age: 34 Year
  Sex: Female

DRUGS (3)
  1. NEXTERONE [Suspect]
     Active Substance: AMIODARONE HYDROCHLORIDE
     Indication: VENTRICULAR TACHYCARDIA
     Route: 040
  2. NEXTERONE [Suspect]
     Active Substance: AMIODARONE HYDROCHLORIDE
     Route: 041
  3. ADENOSINE. [Concomitant]
     Active Substance: ADENOSINE
     Indication: VENTRICULAR TACHYCARDIA
     Route: 065

REACTIONS (2)
  - Bradycardia [Unknown]
  - Brugada syndrome [Recovered/Resolved with Sequelae]
